FAERS Safety Report 4450247-3 (Version None)
Quarter: 2004Q3

REPORT INFORMATION
  Report Type: 
  Country: None (occurrence: None)
  Receive Date: 20040914
  Receipt Date: 20040830
  Transmission Date: 20050211
  Serious: Yes (Other)
  Sender: FDA-Public Use
  Company Number: 2004231260JP

PATIENT
  Age: 65 Year
  Sex: Male

DRUGS (4)
  1. SOLU-MEDROL [Suspect]
     Indication: INTERSTITIAL LUNG DISEASE
     Dosage: 1000 MG, CYCLIC, IV
     Route: 042
     Dates: start: 20021201, end: 20030101
  2. DELTA-CORTEF [Suspect]
     Indication: INTERSTITIAL LUNG DISEASE
     Dosage: SEE IMAGE
     Route: 048
     Dates: start: 20030422
  3. DELTA-CORTEF [Suspect]
     Indication: INTERSTITIAL LUNG DISEASE
     Dosage: SEE IMAGE
     Route: 048
     Dates: start: 20030719
  4. DELTA-CORTEF [Suspect]
     Indication: INTERSTITIAL LUNG DISEASE
     Dosage: SEE IMAGE
     Route: 048
     Dates: start: 20040206

REACTIONS (9)
  - CHORIORETINITIS [None]
  - OPTIC ATROPHY [None]
  - OPTIC NEURITIS RETROBULBAR [None]
  - RETINAL DETACHMENT [None]
  - RETINAL EXUDATES [None]
  - RETINAL NEOPLASM [None]
  - RETINAL PIGMENT EPITHELIOPATHY [None]
  - VISUAL ACUITY REDUCED [None]
  - VITREOUS FLOATERS [None]
